FAERS Safety Report 6527589-0 (Version None)
Quarter: 2010Q1

REPORT INFORMATION
  Report Type: 
  Country: None (occurrence: None)
  Receive Date: 20100105
  Receipt Date: 20091222
  Transmission Date: 20100710
  Serious: Yes (Other)
  Sender: FDA-Public Use
  Company Number: PHHY2009MX58073

PATIENT
  Sex: Male

DRUGS (1)
  1. TRILEPTAL [Suspect]
     Indication: EPILEPSY
     Dosage: 10 ML/DAY
     Dates: start: 20091201

REACTIONS (4)
  - ABNORMAL BEHAVIOUR [None]
  - AGGRESSION [None]
  - INSOMNIA [None]
  - SPEECH DISORDER [None]
